FAERS Safety Report 12085765 (Version 1)
Quarter: 2016Q1

REPORT INFORMATION
  Report Type: Spontaneous
  Country: US (occurrence: US)
  Receive Date: 20160217
  Receipt Date: 20160217
  Transmission Date: 20160526
  Serious: Yes (Death)
  Sender: FDA-Public Use
  Company Number: US-ASTRAZENECA-2016SE15896

PATIENT
  Age: 38 Year
  Sex: Male
  Weight: 77.7 kg

DRUGS (9)
  1. SEROQUEL [Suspect]
     Active Substance: QUETIAPINE FUMARATE
     Indication: SCHIZOPHRENIA
     Route: 048
     Dates: start: 2011
  2. IMITREX [Concomitant]
     Active Substance: SUMATRIPTAN SUCCINATE
  3. OXYCODONE [Suspect]
     Active Substance: OXYCODONE
     Indication: MUSCULOSKELETAL CHEST PAIN
     Dosage: 20 MG, PM
     Route: 048
     Dates: start: 20131024, end: 20140521
  4. OXYCODONE [Suspect]
     Active Substance: OXYCODONE
     Indication: MUSCULOSKELETAL CHEST PAIN
     Route: 065
     Dates: start: 20140529, end: 20140529
  5. AMBIEN [Suspect]
     Active Substance: ZOLPIDEM TARTRATE
     Indication: INSOMNIA
     Dosage: 10 MG, PM
     Route: 048
     Dates: start: 2011
  6. OXYCODONE [Suspect]
     Active Substance: OXYCODONE
     Indication: MUSCULOSKELETAL CHEST PAIN
     Route: 065
     Dates: start: 20140522
  7. AMITRIPTYLINE [Suspect]
     Active Substance: AMITRIPTYLINE
     Indication: INSOMNIA
     Route: 048
     Dates: start: 20131024
  8. FAMVIR [Concomitant]
     Active Substance: FAMCICLOVIR
  9. DIAZEPAM. [Suspect]
     Active Substance: DIAZEPAM
     Route: 065

REACTIONS (5)
  - Toxicity to various agents [Fatal]
  - Asphyxia [Fatal]
  - Accidental death [Fatal]
  - Costochondritis [Unknown]
  - Overdose [Fatal]

NARRATIVE: CASE EVENT DATE: 2013
